FAERS Safety Report 4966828-4 (Version None)
Quarter: 2006Q2

REPORT INFORMATION
  Report Type: 
  Country: None (occurrence: None)
  Receive Date: 20060407
  Receipt Date: 20060405
  Transmission Date: 20061013
  Serious: Yes (Other)
  Sender: FDA-Public Use
  Company Number: DE-MERCK-0604DEU00035

PATIENT
  Age: 66 Year
  Sex: Male
  Weight: 74 kg

DRUGS (2)
  1. INVANZ [Suspect]
     Indication: PNEUMONIA KLEBSIELLA
     Route: 042
     Dates: start: 20060128, end: 20060203
  2. VORICONAZOLE [Suspect]
     Indication: CANDIDA PNEUMONIA
     Route: 048
     Dates: start: 20060126, end: 20060131

REACTIONS (1)
  - MENTAL DISORDER DUE TO A GENERAL MEDICAL CONDITION [None]
